FAERS Safety Report 21043269 (Version 1)
Quarter: 2022Q3

REPORT INFORMATION
  Report Type: Spontaneous
  Country: US (occurrence: None)
  Receive Date: 20220703
  Receipt Date: 20220703
  Transmission Date: 20221027
  Serious: No
  Sender: FDA-Public Use
  Company Number: None

PATIENT
  Age: 65 Year
  Sex: Male
  Weight: 78.75 kg

DRUGS (3)
  1. MEDERMA ADVANCED SCAR [Suspect]
     Active Substance: ALLANTOIN
     Indication: Scar
     Dosage: FREQUENCY : DAILY;?
     Route: 061
     Dates: start: 20220620, end: 20220627
  2. XARELTO [Concomitant]
     Active Substance: RIVAROXABAN
  3. HYDROXYUREA [Concomitant]
     Active Substance: HYDROXYUREA

REACTIONS (2)
  - Application site joint swelling [None]
  - Application site pustules [None]

NARRATIVE: CASE EVENT DATE: 20220625
